FAERS Safety Report 26067779 (Version 1)
Quarter: 2025Q4

REPORT INFORMATION
  Report Type: Spontaneous
  Country: US (occurrence: None)
  Receive Date: 20251120
  Receipt Date: 20251120
  Transmission Date: 20260118
  Serious: No
  Sender: Alvotech
  Company Number: US-ALVOTECHPMS-2025-ALVOTECHPMS-005562

PATIENT
  Age: 28 Year
  Sex: Female

DRUGS (1)
  1. SIMLANDI [Suspect]
     Active Substance: ADALIMUMAB-RYVK
     Indication: Psoriasis
     Dosage: 80 MG EVERY 2 WEEKS
     Dates: start: 202507

REACTIONS (2)
  - Injection site pain [Recovered/Resolved]
  - Product substitution issue [Unknown]
